FAERS Safety Report 6571328-4 (Version None)
Quarter: 2010Q1

REPORT INFORMATION
  Report Type: 
  Country: None (occurrence: None)
  Receive Date: 20100205
  Receipt Date: 20100127
  Transmission Date: 20100710
  Serious: Yes (Other)
  Sender: FDA-Public Use
  Company Number: US-BRISTOL-MYERS SQUIBB COMPANY-14952642

PATIENT
  Sex: Male

DRUGS (2)
  1. ONGLYZA [Suspect]
     Indication: DIABETES MELLITUS
     Route: 048
     Dates: end: 20100201
  2. METFORMIN HCL [Concomitant]

REACTIONS (3)
  - EYE SWELLING [None]
  - RASH [None]
  - SLEEP DISORDER [None]
